FAERS Safety Report 25025085 (Version 3)
Quarter: 2025Q2

REPORT INFORMATION
  Report Type: Spontaneous
  Country: US (occurrence: US)
  Receive Date: 20250228
  Receipt Date: 20250527
  Transmission Date: 20250716
  Serious: Yes (Other)
  Sender: MADRIGAL PHARMACEUTICALS
  Company Number: US-MADRIGAL PHARMACEUTICALS, INC-2025REZ0496

PATIENT

DRUGS (23)
  1. REZDIFFRA [Suspect]
     Active Substance: RESMETIROM
     Indication: Hepatic cirrhosis
     Dosage: 80 MILLIGRAM, QD
     Route: 048
     Dates: start: 20241219, end: 20250121
  2. CALCIUM\VITAMIN D [Concomitant]
     Active Substance: CALCIUM\VITAMIN D
  3. HYOSCYAMINE [Concomitant]
     Active Substance: HYOSCYAMINE
  4. FAMOTIDINE [Concomitant]
     Active Substance: FAMOTIDINE
  5. LEVOTHYROXINE [Concomitant]
     Active Substance: LEVOTHYROXINE
  6. LOSARTAN POTASSIUM AND HYDROCHLOROTHIAZIDE [Concomitant]
     Active Substance: HYDROCHLOROTHIAZIDE\LOSARTAN POTASSIUM
  7. PANTOPRAZOLE [Concomitant]
     Active Substance: PANTOPRAZOLE
  8. XANAX [Concomitant]
     Active Substance: ALPRAZOLAM
  9. ZOLOFT [Concomitant]
     Active Substance: SERTRALINE HYDROCHLORIDE
  10. ALBUTEROL [Concomitant]
     Active Substance: ALBUTEROL
  11. LOSARTAN [Concomitant]
     Active Substance: LOSARTAN
  12. CARVEDILOL [Concomitant]
     Active Substance: CARVEDILOL
  13. FOLIC ACID [Concomitant]
     Active Substance: FOLIC ACID
  14. SPIRONOLACTONE [Concomitant]
     Active Substance: SPIRONOLACTONE
  15. Bunex [Concomitant]
  16. POTASSIUM [Concomitant]
     Active Substance: POTASSIUM
  17. AMBIEN [Concomitant]
     Active Substance: ZOLPIDEM TARTRATE
  18. FLONASE [Concomitant]
     Active Substance: FLUTICASONE PROPIONATE
  19. VITAMIN D [Concomitant]
     Active Substance: VITAMIN D NOS
  20. SEMAGLUTIDE [Concomitant]
     Active Substance: SEMAGLUTIDE
  21. VITAMIN E [Concomitant]
     Active Substance: .ALPHA.-TOCOPHEROL
  22. MAGNESIUM [Concomitant]
     Active Substance: MAGNESIUM
  23. VITAMINS [Concomitant]
     Active Substance: VITAMINS

REACTIONS (6)
  - Ammonia increased [Not Recovered/Not Resolved]
  - Platelet count decreased [Recovering/Resolving]
  - Aspartate aminotransferase increased [Recovering/Resolving]
  - Alanine aminotransferase increased [Recovered/Resolved]
  - Blood bilirubin increased [Recovering/Resolving]
  - Product use in unapproved indication [Recovered/Resolved]

NARRATIVE: CASE EVENT DATE: 20241219
